FAERS Safety Report 15318350 (Version 3)
Quarter: 2018Q4

REPORT INFORMATION
  Report Type: Report from Study
  Country: FR (occurrence: FR)
  Receive Date: 20180825
  Receipt Date: 20181122
  Transmission Date: 20190204
  Serious: Yes (Hospitalization, Other)
  Sender: FDA-Public Use
  Company Number: FR-BRISTOL-MYERS SQUIBB COMPANY-BMS-2018-079137

PATIENT
  Age: 85 Year
  Sex: Male

DRUGS (7)
  1. PREDNISONE. [Concomitant]
     Active Substance: PREDNISONE
     Indication: ASTHMA
     Dosage: 6 MG, PER DAY
     Route: 048
     Dates: start: 20180205
  2. LASILIX                            /00032601/ [Concomitant]
     Active Substance: FUROSEMIDE
     Indication: CARDIAC FAILURE CONGESTIVE
     Dosage: 40 MG, PER DAY
     Route: 048
     Dates: start: 20180205
  3. CANDESARTAN. [Concomitant]
     Active Substance: CANDESARTAN
     Indication: HYPERTENSION
     Dosage: 4 MG, PER DAY
     Route: 048
     Dates: start: 20180205
  4. APIXABAN [Suspect]
     Active Substance: APIXABAN
     Indication: PRODUCT USED FOR UNKNOWN INDICATION
     Dosage: 2.5 MG, PER DAY
     Route: 048
     Dates: start: 20180205, end: 20180616
  5. ATORVASTATIN [Concomitant]
     Active Substance: ATORVASTATIN
     Indication: DYSLIPIDAEMIA
     Dosage: 10 MG, PER DAY
     Route: 048
     Dates: start: 20180205
  6. PLAVIX [Concomitant]
     Active Substance: CLOPIDOGREL BISULFATE
     Indication: PRODUCT USED FOR UNKNOWN INDICATION
     Dosage: 75 MG, PER DAY
     Route: 048
     Dates: start: 20180205
  7. PANTOPRAZOLE [Concomitant]
     Active Substance: PANTOPRAZOLE
     Indication: PRODUCT USED FOR UNKNOWN INDICATION
     Dosage: 20 MG, PER DAY
     Route: 048
     Dates: start: 20180205

REACTIONS (7)
  - Asthenia [Recovered/Resolved]
  - Skin ulcer [Unknown]
  - Peripheral ischaemia [Unknown]
  - Gouty tophus [Unknown]
  - Mitral valve incompetence [Unknown]
  - Cardiac failure congestive [Recovering/Resolving]
  - Aortic arteriosclerosis [Unknown]

NARRATIVE: CASE EVENT DATE: 20180616
